FAERS Safety Report 9648547 (Version 1)
Quarter: 2013Q4

REPORT INFORMATION
  Report Type: Spontaneous
  Country: US (occurrence: US)
  Receive Date: 20131028
  Receipt Date: 20131028
  Transmission Date: 20140711
  Serious: Yes (Other)
  Sender: FDA-Public Use
  Company Number: US-BAYER-2013-127865

PATIENT
  Age: 67 Year
  Sex: Female
  Weight: 106.58 kg

DRUGS (9)
  1. ALEVE TABLET [Suspect]
     Indication: ANALGESIC THERAPY
     Dosage: 2 DF, BID
     Route: 048
     Dates: start: 201306, end: 201310
  2. ALEVE TABLET [Suspect]
     Indication: ANALGESIC THERAPY
     Dosage: 1 DF, BID
     Route: 048
     Dates: start: 201310
  3. AMLODIPINE [Concomitant]
     Dosage: UNK MG, UNK
  4. SIMVASTATIN [Concomitant]
  5. FUROSEMIDE [Concomitant]
  6. KLOR-CON [Concomitant]
  7. COMBIGAN [Concomitant]
  8. PREDNISOLONE [Concomitant]
  9. VITAMIN D3 [Concomitant]

REACTIONS (4)
  - Venous haemorrhage [Recovered/Resolved]
  - Haemorrhagic diathesis [Recovered/Resolved]
  - Extra dose administered [None]
  - Incorrect drug administration duration [None]
